FAERS Safety Report 4644636-1 (Version None)
Quarter: 2005Q2

REPORT INFORMATION
  Report Type: 
  Country: None (occurrence: None)
  Receive Date: 20050426
  Receipt Date: 20040406
  Transmission Date: 20051028
  Serious: Yes (Other)
  Sender: FDA-Public Use
  Company Number: US-NOVOPROD-236277

PATIENT
  Age: 43 Year
  Sex: Female
  Weight: 54 kg

DRUGS (2)
  1. NOVOLOG [Suspect]
     Indication: DIABETES MELLITUS INSULIN-DEPENDENT
     Dosage: 25 - 30 IU, QD
     Route: 058
     Dates: start: 20040201, end: 20040327
  2. NOVOLIN R [Concomitant]
     Indication: DIABETES MELLITUS INSULIN-DEPENDENT
     Dates: start: 20040327, end: 20040501

REACTIONS (2)
  - INFUSION SITE ABSCESS [None]
  - INFUSION SITE INFECTION [None]
